FAERS Safety Report 5313299-4 (Version None)
Quarter: 2007Q2

REPORT INFORMATION
  Report Type: 
  Country: None (occurrence: None)
  Receive Date: 20070501
  Receipt Date: 20070420
  Transmission Date: 20071010
  Serious: Yes (Hospitalization)
  Sender: FDA-Public Use
  Company Number: PHHO2006DE20990

PATIENT
  Sex: Female
  Weight: 174 kg

DRUGS (4)
  1. ZOLEDRONIC ACID [Suspect]
     Indication: BREAST CANCER
     Dosage: 4MG EVERY 3 MONTHS
     Route: 042
     Dates: start: 20060529
  2. FEMARA [Suspect]
     Indication: BREAST CANCER
     Dosage: 2.5 MG, QD
     Route: 048
     Dates: start: 20060606
  3. CEFASEL [Concomitant]
     Dates: start: 20060329
  4. MARCUMAR [Concomitant]

REACTIONS (3)
  - POSTMENOPAUSAL HAEMORRHAGE [None]
  - UTERINE ATROPHY [None]
  - UTERINE DILATION AND CURETTAGE [None]
